FAERS Safety Report 19380177 (Version 1)
Quarter: 2021Q2

REPORT INFORMATION
  Report Type: Spontaneous
  Country: DE (occurrence: DE)
  Receive Date: 20210607
  Receipt Date: 20210607
  Transmission Date: 20210717
  Serious: Yes (Hospitalization, Other)
  Sender: FDA-Public Use
  Company Number: DE-AUROBINDO-AUR-APL-2021-022889

PATIENT
  Age: 88 Year
  Sex: Female

DRUGS (5)
  1. VERAPAMIL 1 A PHARM [Suspect]
     Active Substance: VERAPAMIL HYDROCHLORIDE
     Indication: PRODUCT USED FOR UNKNOWN INDICATION
     Dosage: 80 MILLIGRAM (0.5?0.5?0.5?0, TABLETS)
     Route: 048
  2. FLECAINID 1A PHARMA [Suspect]
     Active Substance: FLECAINIDE ACETATE
     Indication: PRODUCT USED FOR UNKNOWN INDICATION
     Dosage: 100 MILLIGRAM, TWO TIMES A DAY
     Route: 048
  3. RAMIPRIL. [Concomitant]
     Active Substance: RAMIPRIL
     Indication: PRODUCT USED FOR UNKNOWN INDICATION
     Dosage: 5 MILLIGRAM, TWO TIMES A DAY (1?0?1?0)
     Route: 048
  4. MARCUMAR [Concomitant]
     Active Substance: PHENPROCOUMON
     Indication: PRODUCT USED FOR UNKNOWN INDICATION
     Dosage: UNK (ACCORDING TO INR, TABLETS)
     Route: 048
  5. HYDROCHLOROTHIAZIDE  TABLETS [Suspect]
     Active Substance: HYDROCHLOROTHIAZIDE
     Indication: PRODUCT USED FOR UNKNOWN INDICATION
     Dosage: 25 MILLIGRAM (0.5?0.25?0?0, TABLETS)
     Route: 048

REACTIONS (5)
  - Renal impairment [Unknown]
  - Vertigo [Unknown]
  - General physical health deterioration [Unknown]
  - Electrolyte imbalance [Unknown]
  - Dyspnoea exertional [Unknown]
